FAERS Safety Report 4819512-1 (Version None)
Quarter: 2005Q4

REPORT INFORMATION
  Report Type: 
  Country: None (occurrence: None)
  Receive Date: 20051102
  Receipt Date: 20051102
  Transmission Date: 20060501
  Serious: Yes (Other)
  Sender: FDA-Public Use
  Company Number: None

PATIENT
  Age: 58 Year
  Sex: Female
  Weight: 107.0489 kg

DRUGS (11)
  1. PROTAMINE SULFATE [Suspect]
  2. PLAVIX [Concomitant]
  3. ASPIRIN [Concomitant]
  4. LIPITOR [Concomitant]
  5. ENALAPRIL MALEATE [Concomitant]
  6. WELLBUTRIN [Concomitant]
  7. PRILOSEC [Concomitant]
  8. DETROL LA [Concomitant]
  9. VALIUM [Concomitant]
  10. CELEBREX [Concomitant]
  11. ACTONEL [Concomitant]

REACTIONS (1)
  - CHEST PAIN [None]
